FAERS Safety Report 10994266 (Version 1)
Quarter: 2015Q2

REPORT INFORMATION
  Report Type: Spontaneous
  Country: DK (occurrence: DK)
  Receive Date: 20150407
  Receipt Date: 20150407
  Transmission Date: 20150821
  Serious: Yes (Disabling)
  Sender: FDA-Public Use
  Company Number: DK-WATSON-2015-07131

PATIENT
  Age: 46 Year
  Sex: Male
  Weight: 75 kg

DRUGS (1)
  1. TETRACYCLINE ACTAVIS (UNKNOWN) [Suspect]
     Active Substance: TETRACYCLINE
     Indication: ROSACEA
     Dosage: 250 MG, DAILY
     Route: 048
     Dates: start: 20041201, end: 20150205

REACTIONS (1)
  - Headache [Not Recovered/Not Resolved]

NARRATIVE: CASE EVENT DATE: 20110701
